FAERS Safety Report 17211175 (Version 1)
Quarter: 2019Q4

REPORT INFORMATION
  Report Type: Spontaneous
  Country: US (occurrence: US)
  Receive Date: 20191228
  Receipt Date: 20191228
  Transmission Date: 20200122
  Serious: Yes (Death, Life-Threatening, Hospitalization)
  Sender: FDA-Public Use
  Company Number: US-SCIEGEN PHARMACEUTICALS INC-2019SCILIT00390

PATIENT
  Age: 32 Year
  Sex: Male

DRUGS (3)
  1. BUPROPION HYDROCHLORIDE. [Suspect]
     Active Substance: BUPROPION HYDROCHLORIDE
  2. OLANZAPINE. [Suspect]
     Active Substance: OLANZAPINE
  3. LAMOTRIGINE TABLETS [Suspect]
     Active Substance: LAMOTRIGINE

REACTIONS (1)
  - Toxicity to various agents [Fatal]
